FAERS Safety Report 17533370 (Version 1)
Quarter: 2020Q1

REPORT INFORMATION
  Report Type: Spontaneous
  Country: DK (occurrence: DK)
  Receive Date: 20200312
  Receipt Date: 20200312
  Transmission Date: 20200409
  Serious: Yes (Other)
  Sender: FDA-Public Use
  Company Number: DK-009507513-2003DNK002722

PATIENT
  Age: 72 Year
  Sex: Male

DRUGS (21)
  1. KEYTRUDA [Suspect]
     Active Substance: PEMBROLIZUMAB
     Indication: NON-SMALL CELL LUNG CANCER
     Dosage: 200 MILLIGRAM, TOTAL OF 11 SERIES, STRENGTH: UNKNOWN
     Route: 042
     Dates: start: 20190116, end: 20190820
  2. INSULIN ASPART [Concomitant]
     Active Substance: INSULIN ASPART
     Indication: DIABETES MELLITUS
     Dosage: UNK, STRENGTH: 100 E/ML. DOSE: VARYING
     Route: 058
     Dates: start: 20191118
  3. PREDNISOLONE. [Concomitant]
     Active Substance: PREDNISOLONE
     Indication: BLOOD CORTISOL
     Dosage: 25 MILLIGRAM, QD
     Route: 048
     Dates: start: 20191211
  4. CALCIUM (UNSPECIFIED) (+) VITAMIN D (UNSPECIFIED) [Concomitant]
     Active Substance: CALCIUM CARBONATE\VITAMIN D
     Indication: MINERAL SUPPLEMENTATION
     Dosage: 3 DOSAGE FORM, QD, STRENGTH: 400 MG + 19 MICROGRAM.
     Route: 048
     Dates: start: 20191201
  5. INSULATARD FLEXPEN [Concomitant]
     Active Substance: INSULIN HUMAN
     Indication: DIABETES MELLITUS
     Dosage: 20 DOSAGE FORM, QD, STRENGTH: 100 IE/ML, SUSPENSION FOR INJECTION IN PRE-FILLED PEN
     Route: 058
     Dates: start: 20191204
  6. NITROGLYCERIN. [Concomitant]
     Active Substance: NITROGLYCERIN
     Indication: CHEST PAIN
     Dosage: 2 DOSAGE FORM, 1 AS NECESSARY, STRENGTH: 0.4 MG/DOSE. DOSE: TWO (2) INHALATIONS AS NECESSARY, MAXIMU
     Route: 060
     Dates: start: 20191114
  7. BISACODYL. [Concomitant]
     Active Substance: BISACODYL
     Indication: CONSTIPATION
     Dosage: 10 MILLIGRAM, 1 AS NECESSARY, DOSE: TWO (2) TABLETS AS NECESSARY, MAXIMUM 2 X DAILY
     Route: 048
     Dates: start: 20190923
  8. BETNOVAT MED CHINOFORM [Concomitant]
     Indication: ECZEMA INFECTED
     Dosage: 1 DOSAGE FORM, QD, STRENGTH: 1+30 MG/G.
     Route: 003
     Dates: start: 20191207
  9. MORPHINE [Concomitant]
     Active Substance: MORPHINE
     Indication: PAIN
     Dosage: 5 MILLIGRAM, PRN,1 AS NECESSARY, DOSE:1/2 TABLET AS NECESSARY, MAXIMUM 6 TABLETS DAILY.
     Route: 048
     Dates: start: 20191211
  10. POTASSIUM CHLORIDE. [Concomitant]
     Active Substance: POTASSIUM CHLORIDE
     Indication: MINERAL SUPPLEMENTATION
     Dosage: 2250 MILLIGRAM, QD
     Route: 048
     Dates: start: 20191002
  11. ACETAMINOPHEN. [Concomitant]
     Active Substance: ACETAMINOPHEN
     Indication: PAIN
     Dosage: 4000 MILLIGRAM, QD
     Route: 048
     Dates: start: 20191130
  12. PANTOPRAZOLE [Concomitant]
     Active Substance: PANTOPRAZOLE
     Indication: GASTROOESOPHAGEAL REFLUX DISEASE
     Dosage: 40 MILLIGRAM, QD
     Route: 048
     Dates: start: 20190917
  13. ASPIRIN. [Concomitant]
     Active Substance: ASPIRIN
     Indication: THROMBOSIS PROPHYLAXIS
     Dosage: 75 MILLIGRAM, QD
     Route: 048
     Dates: start: 20091230
  14. FUSIDIC ACID [Concomitant]
     Active Substance: FUSIDIC ACID
     Indication: CONJUNCTIVITIS
     Dosage: 3 GTT DROPS (1/12 MILLILITRE), QD
     Route: 050
     Dates: start: 20191223
  15. BENDROFLUMETHIAZIDE (+) POTASSIUM CHLORIDE [Concomitant]
     Indication: HYPERTENSION
     Dosage: 1 DOSAGE FORM, QD, STRENGTH: 2.5+573 MG
     Route: 048
     Dates: start: 20191115
  16. LINAGLIPTIN [Concomitant]
     Active Substance: LINAGLIPTIN
     Indication: TYPE 2 DIABETES MELLITUS
     Dosage: 5 MILLIGRAM, QD
     Route: 048
     Dates: start: 20191203
  17. FUROSEMIDE. [Concomitant]
     Active Substance: FUROSEMIDE
     Indication: DIURETIC THERAPY
     Dosage: UNK, DOSE: TWO (2) DOSES IN THE MORNING AND ONE DOSE AT NOON
     Route: 048
     Dates: start: 20191209
  18. LOSARTAN POTASSIUM. [Concomitant]
     Active Substance: LOSARTAN POTASSIUM
     Indication: HYPERTENSION
     Dosage: 100 MILLIGRAM, QD
     Route: 048
     Dates: start: 20191209
  19. MOMETASONE FUROATE. [Concomitant]
     Active Substance: MOMETASONE FUROATE
     Indication: NASAL POLYPS
     Dosage: 4 DOSAGE FORM, QD, STRENGTH:50 MICROGRAM/DOSE
     Route: 045
     Dates: start: 20191114
  20. METOPROLOL SUCCINATE. [Concomitant]
     Active Substance: METOPROLOL SUCCINATE
     Indication: THROMBOSIS PROPHYLAXIS
     Dosage: 50 MILLIGRAM, QD
     Route: 048
     Dates: start: 20191204
  21. POLYETHYLENE GLYCOL [Concomitant]
     Active Substance: POLYETHYLENE GLYCOLS
     Indication: CONSTIPATION
     Dosage: 1 DOSAGE FORM, 1 AS NECESSARY, STRENGTH: UNKOWN. DOSE: ONE (1) SACHET AS NECESSARY, MAXIMUM 3 X DAIL
     Route: 048
     Dates: start: 20190923

REACTIONS (1)
  - Kaposi^s sarcoma [Not Recovered/Not Resolved]

NARRATIVE: CASE EVENT DATE: 202002
